FAERS Safety Report 10268916 (Version 1)
Quarter: 2014Q2

REPORT INFORMATION
  Report Type: Spontaneous
  Country: BR (occurrence: BR)
  Receive Date: 20140630
  Receipt Date: 20140630
  Transmission Date: 20141212
  Serious: Yes (Other)
  Sender: FDA-Public Use
  Company Number: BR-EISAI INC-E3810-07221-SPO-BR

PATIENT
  Sex: Male

DRUGS (3)
  1. RABEPRAZOLE [Suspect]
     Indication: EROSIVE OESOPHAGITIS
     Route: 048
     Dates: start: 20140512
  2. RABEPRAZOLE [Suspect]
     Indication: GASTRITIS
  3. RABEPRAZOLE [Suspect]
     Indication: EROSIVE DUODENITIS

REACTIONS (2)
  - Visual acuity reduced [Not Recovered/Not Resolved]
  - Ischaemic stroke [Not Recovered/Not Resolved]
